FAERS Safety Report 5371617-5 (Version None)
Quarter: 2007Q2

REPORT INFORMATION
  Report Type: 
  Country: None (occurrence: None)
  Receive Date: 20070615
  Receipt Date: 20060804
  Transmission Date: 20071010
  Serious: Yes (Other)
  Sender: FDA-Public Use
  Company Number: 200613374US

PATIENT
  Age: 45 Year
  Sex: Male

DRUGS (9)
  1. LANTUS [Suspect]
     Indication: DIABETES MELLITUS INSULIN-DEPENDENT
     Dosage: 80 U QD
     Dates: start: 20050101
  2. LANTUS [Suspect]
     Indication: DIABETES MELLITUS INSULIN-DEPENDENT
     Dates: start: 20060301
  3. NOVOLOG [Concomitant]
  4. GLYBURIDE [Concomitant]
  5. COREG [Concomitant]
  6. DILANTIN [Concomitant]
  7. ISOSORBIDE DINITRATE [Concomitant]
  8. METFORMIN HCL [Concomitant]
  9. FOSINOPRIL SODIUM [Concomitant]

REACTIONS (2)
  - HYPOGLYCAEMIA [None]
  - MALAISE [None]
